FAERS Safety Report 6641771-3 (Version None)
Quarter: 2010Q1

REPORT INFORMATION
  Report Type: 
  Country: None (occurrence: None)
  Receive Date: 20100316
  Receipt Date: 20090729
  Transmission Date: 20100710
  Serious: Yes (Disabling, Other)
  Sender: FDA-Public Use
  Company Number: APP200900496

PATIENT
  Age: 26 Year
  Sex: Male

DRUGS (3)
  1. SENSORCAINE [Suspect]
     Indication: PROCEDURAL PAIN
     Dosage: 250 - 300 ML VIA PUMP, INTRA-ARTICULAR
     Route: 014
  2. INTRA-ARTICULAR HIGH-VOLUME PAIN PUMP [Suspect]
     Indication: PROCEDURAL PAIN
  3. BIPOLAR THERMAL PROBE [Suspect]
     Indication: ARTHROSCOPY

REACTIONS (1)
  - CHONDROLYSIS [None]
